FAERS Safety Report 8777793 (Version 1)
Quarter: 2012Q4

REPORT INFORMATION
  Report Type: 
  Country: US (occurrence: US)
  Receive Date: 20120911
  Receipt Date: 20120911
  Transmission Date: 20130627
  Serious: Yes (Death, Hospitalization)
  Sender: FDA-Public Use
  Company Number: PHEH2012US017402

PATIENT
  Age: 69 Year
  Sex: Female
  Weight: 62.13 kg

DRUGS (14)
  1. AFINITOR [Suspect]
     Indication: BREAST CANCER METASTATIC
     Dosage: 10 mg, QD
     Route: 048
     Dates: start: 20120510, end: 20120604
  2. XANAX [Concomitant]
     Dosage: 0.5 OT, Q6H
     Route: 048
  3. COREG [Concomitant]
     Dosage: 12.5 OT, BID
     Route: 048
  4. AROMASIN [Concomitant]
     Dosage: 25 OT, daily
     Route: 048
  5. GABAPENTIN [Concomitant]
     Dosage: 600 mg, TID
     Route: 048
  6. VICOPROFEN [Concomitant]
     Dosage: 1 DF, PRN every 6 hours
     Route: 048
  7. SYNTHROID [Concomitant]
     Dosage: 50 ug, daily
     Route: 048
  8. PRINIVIL [Concomitant]
     Dosage: 10 mg, daily
     Route: 048
  9. PREDNISONE [Concomitant]
     Dosage: 10 mg, BID
     Route: 048
  10. VENLAFAXINE [Concomitant]
     Dosage: 150 OT, daily
     Route: 048
  11. ALPRAZOLAM [Concomitant]
     Indication: ANXIETY
     Dosage: 0.5 mg, Q6H
     Route: 048
  12. BISACODYL [Concomitant]
     Indication: CONSTIPATION
     Dosage: 10 mg, PRN, daily
     Route: 054
  13. CLONAZEPAM [Concomitant]
     Indication: ANXIETY
     Dosage: 1 mg, Q6H
     Route: 042
  14. FLEET ENEMA [Concomitant]
     Indication: CONSTIPATION

REACTIONS (18)
  - Neoplasm progression [Fatal]
  - Malignant neoplasm progression [Fatal]
  - Fall [Unknown]
  - Facial pain [Unknown]
  - Asthenia [Unknown]
  - Nausea [Unknown]
  - Vomiting [Unknown]
  - Contusion [None]
  - Urinary tract infection [None]
  - Aspartate aminotransferase increased [None]
  - Alanine aminotransferase increased [None]
  - Bundle branch block left [None]
  - Left atrial dilatation [None]
  - Thrombocytopenia [None]
  - Dehydration [None]
  - Depression [None]
  - Hypothyroidism [None]
  - Hypertension [None]
